FAERS Safety Report 8481304-2 (Version None)
Quarter: 2012Q3

REPORT INFORMATION
  Report Type: 
  Country: None (occurrence: None)
  Receive Date: 20120702
  Receipt Date: 20120619
  Transmission Date: 20120928
  Serious: Yes (Other)
  Sender: FDA-Public Use
  Company Number: CA-JNJFOC-20120608266

PATIENT
  Sex: Female
  Weight: 130.2 kg

DRUGS (10)
  1. SOLU-CORTEF [Concomitant]
     Indication: PREMEDICATION
     Route: 042
  2. REMICADE [Suspect]
     Dosage: 19TH INFUSION
     Route: 042
     Dates: start: 20120616
  3. BENADRYL [Concomitant]
     Dosage: 200MG IN 4 DOSES
     Route: 048
  4. FUROSEMIDE [Concomitant]
     Route: 065
  5. ARTHROTEC [Concomitant]
     Route: 065
  6. TYLENOL W/ CODEINE NO. 3 [Concomitant]
     Route: 065
  7. REMICADE [Suspect]
     Indication: CROHN'S DISEASE
     Route: 042
     Dates: start: 20100224
  8. NAPROXEN [Concomitant]
     Route: 065
  9. BIRTH CONTROL PILL [Concomitant]
     Route: 065
  10. BENADRYL [Concomitant]
     Indication: PREMEDICATION
     Route: 042

REACTIONS (9)
  - DYSPNOEA [None]
  - INFUSION RELATED REACTION [None]
  - SOMNOLENCE [None]
  - CHILLS [None]
  - ASTHENIA [None]
  - CHROMATURIA [None]
  - PALPITATIONS [None]
  - VOMITING [None]
  - NAUSEA [None]
